FAERS Safety Report 7612365-8 (Version None)
Quarter: 2011Q3

REPORT INFORMATION
  Report Type: 
  Country: None (occurrence: None)
  Receive Date: 20110716
  Receipt Date: 20110706
  Transmission Date: 20111222
  Serious: Yes (Hospitalization, Other)
  Sender: FDA-Public Use
  Company Number: US-ASTRAZENECA-2011SE20797

PATIENT
  Age: 30428 Day
  Sex: Female

DRUGS (1)
  1. CRESTOR [Suspect]
     Route: 048

REACTIONS (15)
  - KIDNEY INFECTION [None]
  - DIABETES MELLITUS INADEQUATE CONTROL [None]
  - MUSCULOSKELETAL DISCOMFORT [None]
  - ACCIDENT [None]
  - RIB FRACTURE [None]
  - HEAD INJURY [None]
  - CALCINOSIS [None]
  - MOVEMENT DISORDER [None]
  - MALAISE [None]
  - LARYNGITIS [None]
  - PAIN [None]
  - BRONCHITIS [None]
  - HYPOACUSIS [None]
  - HEAD DISCOMFORT [None]
  - RENAL DISORDER [None]
